FAERS Safety Report 5818159-8 (Version None)
Quarter: 2008Q3

REPORT INFORMATION
  Report Type: 
  Country: None (occurrence: None)
  Receive Date: 20080722
  Receipt Date: 20071026
  Transmission Date: 20090109
  Serious: No
  Sender: FDA-Public Use
  Company Number: US-BAYER-US-2007-040388

PATIENT
  Age: 38 Year
  Sex: Female
  Weight: 73 kg

DRUGS (11)
  1. MAGNEVIST [Suspect]
     Indication: NUCLEAR MAGNETIC RESONANCE IMAGING
     Route: 042
  2. ALBUTEROL [Concomitant]
  3. MORPHINE [Concomitant]
  4. DIAZEPAM [Concomitant]
  5. NORTRIPTYLINE HCL [Concomitant]
  6. PENICILLIN [Concomitant]
  7. CYCLOBENZAPRINE HCL [Concomitant]
  8. TIZANIDINE HCL [Concomitant]
  9. IMIPRAMINE [Concomitant]
  10. ALLEGRA [Concomitant]
  11. 'GABATENCIN' [Concomitant]

REACTIONS (7)
  - ARTHRALGIA [None]
  - BURNING SENSATION [None]
  - FEELING HOT [None]
  - GAIT DISTURBANCE [None]
  - MUSCULAR WEAKNESS [None]
  - PAIN IN EXTREMITY [None]
  - SKIN LESION [None]
